FAERS Safety Report 11035692 (Version 1)
Quarter: 2015Q2

REPORT INFORMATION
  Report Type: Spontaneous
  Country: FR (occurrence: FR)
  Receive Date: 20150415
  Receipt Date: 20150415
  Transmission Date: 20150821
  Serious: Yes (Life-Threatening, Hospitalization)
  Sender: FDA-Public Use
  Company Number: FR-ABBVIE-15P-056-1375862-00

PATIENT
  Age: 45 Year
  Sex: Male

DRUGS (6)
  1. RALTEGRAVIR [Suspect]
     Active Substance: RALTEGRAVIR
     Indication: HIV INFECTION
     Route: 048
  2. SUBUTEX [Concomitant]
     Active Substance: BUPRENORPHINE HYDROCHLORIDE
     Indication: PRODUCT USED FOR UNKNOWN INDICATION
     Route: 048
  3. LEXOMIL [Concomitant]
     Active Substance: BROMAZEPAM
     Indication: PRODUCT USED FOR UNKNOWN INDICATION
     Route: 048
  4. KALETRA [Suspect]
     Active Substance: LOPINAVIR\RITONAVIR
     Indication: HIV INFECTION
     Route: 048
  5. INTELENCE [Suspect]
     Active Substance: ETRAVIRINE
     Indication: HIV INFECTION
     Route: 048
  6. INEXIUM [Concomitant]
     Active Substance: ESOMEPRAZOLE
     Indication: GASTROINTESTINAL HAEMORRHAGE
     Route: 048
     Dates: start: 20150315

REACTIONS (6)
  - Ventricular tachycardia [Unknown]
  - Myocardial infarction [Not Recovered/Not Resolved]
  - Altered state of consciousness [Recovering/Resolving]
  - Agitation [Recovering/Resolving]
  - Nervous system disorder [Recovering/Resolving]
  - Cardiac arrest [Unknown]

NARRATIVE: CASE EVENT DATE: 20150321
